FAERS Safety Report 26109602 (Version 1)
Quarter: 2025Q4

REPORT INFORMATION
  Report Type: Spontaneous
  Country: JP (occurrence: JP)
  Receive Date: 20251201
  Receipt Date: 20251201
  Transmission Date: 20260117
  Serious: Yes (Other)
  Sender: MYLAN
  Company Number: JP-VIATRISJAPAN-2025M1100446AA

PATIENT
  Age: 68 Year
  Sex: Male

DRUGS (4)
  1. LIPITOR [Interacting]
     Active Substance: ATORVASTATIN CALCIUM
     Indication: Product used for unknown indication
  2. LIPITOR [Interacting]
     Active Substance: ATORVASTATIN CALCIUM
     Route: 048
  3. LIPITOR [Interacting]
     Active Substance: ATORVASTATIN CALCIUM
     Route: 048
  4. LIPITOR [Interacting]
     Active Substance: ATORVASTATIN CALCIUM

REACTIONS (3)
  - Arrhythmia [Unknown]
  - Extrasystoles [Unknown]
  - Food interaction [Unknown]
